FAERS Safety Report 18242036 (Version 1)
Quarter: 2020Q3

REPORT INFORMATION
  Report Type: Spontaneous
  Country: US (occurrence: US)
  Receive Date: 20200908
  Receipt Date: 20200908
  Transmission Date: 20201103
  Serious: No
  Sender: FDA-Public Use
  Company Number: None

PATIENT
  Age: 30 Year
  Sex: Female
  Weight: 58.5 kg

DRUGS (7)
  1. ERBITUX INFUSION [Concomitant]
  2. BRAFTOVI [Suspect]
     Active Substance: ENCORAFENIB
     Indication: COLON CANCER
     Route: 048
     Dates: start: 20200818
  3. DOXYCYCLINE 150 MG [Concomitant]
  4. MULTIVITAMIN [Concomitant]
     Active Substance: VITAMINS
  5. OMEPRAZOLE 40 MG [Concomitant]
     Active Substance: OMEPRAZOLE
  6. OLANZAPINE 10MG [Concomitant]
     Active Substance: OLANZAPINE
  7. NORCO 7.5?325MG [Concomitant]

REACTIONS (2)
  - Nausea [None]
  - Drug ineffective [None]

NARRATIVE: CASE EVENT DATE: 20200908
